FAERS Safety Report 20663214 (Version 3)
Quarter: 2022Q4

REPORT INFORMATION
  Report Type: Report from Study
  Country: DE (occurrence: None)
  Receive Date: 20220401
  Receipt Date: 20221125
  Transmission Date: 20230113
  Serious: Yes (Hospitalization)
  Sender: FDA-Public Use
  Company Number: DE-ROCHE-3059146

PATIENT
  Age: 41 Year
  Sex: Female
  Weight: 58 kg

DRUGS (28)
  1. ATEZOLIZUMAB [Suspect]
     Active Substance: ATEZOLIZUMAB
     Indication: Triple negative breast cancer
     Dosage: LAST DOSE PRIOR TO SAE- 02/FEB/2022
     Route: 041
     Dates: start: 20211015
  2. PACLITAXEL [Suspect]
     Active Substance: PACLITAXEL
     Indication: Triple negative breast cancer
     Dosage: LAST DOSE PRIOR TO SAE- 26/JAN/2022
     Route: 042
     Dates: start: 20211110
  3. CYCLOPHOSPHAMIDE [Suspect]
     Active Substance: CYCLOPHOSPHAMIDE
     Indication: Triple negative breast cancer
     Route: 042
     Dates: start: 20220202
  4. CARBOPLATIN [Suspect]
     Active Substance: CARBOPLATIN
     Indication: Triple negative breast cancer
     Dosage: LAST DOSE PRIOR TO SAE: 26/NOV/2022
     Route: 042
     Dates: start: 20211110
  5. EPIRUBICIN [Suspect]
     Active Substance: EPIRUBICIN
     Indication: Triple negative breast cancer
     Dosage: LAST DOSE PRIOR TO SAE: 02/FEB/2022
     Route: 042
     Dates: start: 20220202
  6. ESCITALOPRAM [Concomitant]
     Active Substance: ESCITALOPRAM OXALATE
     Dates: start: 20210826
  7. DOMINAL (GERMANY) [Concomitant]
     Dates: start: 20210826
  8. PREDNISOLONE [Concomitant]
     Active Substance: PREDNISOLONE
     Dates: start: 20211108
  9. VERAPAMIL [Concomitant]
     Active Substance: VERAPAMIL HYDROCHLORIDE
     Dates: start: 20211108
  10. PANTOZOL [Concomitant]
     Active Substance: PANTOPRAZOLE SODIUM
     Dates: start: 20211108, end: 20220330
  11. MCP [Concomitant]
     Active Substance: METOCLOPRAMIDE HYDROCHLORIDE
     Dates: start: 20211115, end: 20220413
  12. ZOFRAN [Concomitant]
     Active Substance: ONDANSETRON HYDROCHLORIDE
     Dates: start: 20211115, end: 20220413
  13. DEXAMETHASONE [Concomitant]
     Active Substance: DEXAMETHASONE
     Dates: start: 20211115, end: 20220401
  14. DEXAMETHASONE [Concomitant]
     Active Substance: DEXAMETHASONE
     Dates: start: 20211110, end: 20220126
  15. CLEMASTINE [Concomitant]
     Active Substance: CLEMASTINE
     Dates: start: 20211110, end: 20220126
  16. GRANISETRON [Concomitant]
     Active Substance: GRANISETRON
     Dates: start: 20211110, end: 20220330
  17. DYNEXAN (GERMANY) [Concomitant]
     Dates: start: 20211214, end: 20220115
  18. NEUPOGEN [Concomitant]
     Active Substance: FILGRASTIM
     Dosage: 30 MIO E
     Dates: start: 20211224, end: 20220124
  19. FERROUS GLUCONATE [Concomitant]
     Active Substance: FERROUS GLUCONATE
     Dates: start: 20220112, end: 20220330
  20. ARANESP [Concomitant]
     Active Substance: DARBEPOETIN ALFA
     Dates: start: 20220128, end: 20220128
  21. MESNA [Concomitant]
     Active Substance: MESNA
     Dates: start: 20220202, end: 20220330
  22. CIPROFLOXACIN [Concomitant]
     Active Substance: CIPROFLOXACIN
     Dates: start: 20220211, end: 20220218
  23. FUCIDINE [Concomitant]
     Dates: start: 20220211, end: 20220220
  24. AKNEMYCIN (GERMANY) [Concomitant]
     Dates: start: 20220211
  25. ENOXAPARIN SODIUM [Concomitant]
     Active Substance: ENOXAPARIN SODIUM
     Dates: start: 20220223, end: 20220306
  26. MOMETASONE [Concomitant]
     Active Substance: MOMETASONE
     Dates: start: 20220225, end: 20220330
  27. CIMETIDIN [Concomitant]
     Dates: start: 20211110, end: 20220126
  28. CALCIUM [Concomitant]
     Active Substance: CALCIUM
     Dates: start: 20220227, end: 20220302

REACTIONS (1)
  - Sepsis [Recovered/Resolved]

NARRATIVE: CASE EVENT DATE: 20220223
